FAERS Safety Report 12674792 (Version 2)
Quarter: 2016Q3

REPORT INFORMATION
  Report Type: Spontaneous
  Country: SE (occurrence: SE)
  Receive Date: 20160822
  Receipt Date: 20160902
  Transmission Date: 20161109
  Serious: Yes (Life-Threatening, Hospitalization, Disabling, Congenital Anomaly)
  Sender: FDA-Public Use
  Company Number: SE-ABBVIE-16P-150-1707888-00

PATIENT
  Age: 4 Month
  Sex: Male

DRUGS (1)
  1. ERGENYL RETARD [Suspect]
     Active Substance: VALPROIC ACID
     Indication: MATERNAL EXPOSURE TIMING UNSPECIFIED
     Route: 064

REACTIONS (4)
  - Foetal exposure during pregnancy [Unknown]
  - Intellectual disability [Unknown]
  - Developmental delay [Unknown]
  - Infantile spasms [Unknown]

NARRATIVE: CASE EVENT DATE: 20080213
